FAERS Safety Report 9282714 (Version 1)
Quarter: 2013Q2

REPORT INFORMATION
  Report Type: Spontaneous
  Country: US (occurrence: None)
  Receive Date: 20130509
  Receipt Date: 20130509
  Transmission Date: 20140414
  Serious: Yes (Other)
  Sender: FDA-Public Use
  Company Number: None

PATIENT
  Age: 70 None
  Sex: Female
  Weight: 68.95 kg

DRUGS (2)
  1. LEVOFLOXACIN [Suspect]
     Indication: SINUSITIS
     Dosage: 1 TABLET ONCE A DAY OTHER
     Dates: start: 20130405, end: 20130414
  2. LEVOFLOXACIN [Suspect]
     Indication: BRONCHITIS
     Dosage: 1 TABLET ONCE A DAY OTHER
     Dates: start: 20130405, end: 20130414

REACTIONS (5)
  - Myalgia [None]
  - Arthralgia [None]
  - Back pain [None]
  - Musculoskeletal pain [None]
  - Neck pain [None]
